FAERS Safety Report 15811830 (Version 1)
Quarter: 2019Q1

REPORT INFORMATION
  Report Type: Spontaneous
  Country: BR (occurrence: BR)
  Receive Date: 20190111
  Receipt Date: 20190111
  Transmission Date: 20190417
  Serious: Yes (Other)
  Sender: FDA-Public Use
  Company Number: PHHY2019BR003496

PATIENT
  Age: 68 Year
  Sex: Female

DRUGS (1)
  1. OCTREOTIDE. [Suspect]
     Active Substance: OCTREOTIDE
     Indication: PRODUCT USED FOR UNKNOWN INDICATION
     Dosage: 20 MG, Q2W
     Route: 030

REACTIONS (8)
  - Hepatic cyst [Unknown]
  - Portal hypertension [Unknown]
  - Inappropriate schedule of product administration [Unknown]
  - Budd-Chiari syndrome [Unknown]
  - Vascular compression [Unknown]
  - Splenomegaly [Unknown]
  - Varices oesophageal [Unknown]
  - Haemorrhage [Unknown]
